FAERS Safety Report 8733544 (Version 2)
Quarter: 2012Q4

REPORT INFORMATION
  Report Type: 
  Country: BG (occurrence: BG)
  Receive Date: 20120821
  Receipt Date: 20120928
  Transmission Date: 20130627
  Serious: Yes (Hospitalization, Other)
  Sender: FDA-Public Use
  Company Number: BG-RANBAXY-2012RR-59002

PATIENT
  Age: 39 Year
  Sex: Male

DRUGS (1)
  1. FLUCONAZOLE [Suspect]
     Indication: ENDOCARDITIS CANDIDA
     Dosage: 400 mg/day
     Route: 065

REACTIONS (3)
  - Pathogen resistance [Unknown]
  - Arterial thrombosis [Unknown]
  - Cardiac valve vegetation [Unknown]
